FAERS Safety Report 9108246 (Version 2)
Quarter: 2013Q1

REPORT INFORMATION
  Report Type: Spontaneous
  Country: IL (occurrence: IL)
  Receive Date: 20130222
  Receipt Date: 20130312
  Transmission Date: 20140127
  Serious: Yes (Life-Threatening, Hospitalization, Other)
  Sender: FDA-Public Use
  Company Number: IL-TEVA-385056ISR

PATIENT
  Age: 66 Year
  Sex: Female
  Weight: 57 kg

DRUGS (1)
  1. AZILECT [Suspect]
     Route: 048

REACTIONS (9)
  - Acute myocardial infarction [Recovered/Resolved]
  - Haemorrhage [Recovered/Resolved]
  - Shock haemorrhagic [Recovered/Resolved]
  - Retroperitoneal haematoma [Recovered/Resolved]
  - Intracardiac thrombus [Recovering/Resolving]
  - Pneumonia [Recovered/Resolved]
  - Hypoalbuminaemia [Recovering/Resolving]
  - Fungal skin infection [Recovering/Resolving]
  - Postpericardiotomy syndrome [Recovering/Resolving]
